FAERS Safety Report 4719571-0 (Version None)
Quarter: 2005Q3

REPORT INFORMATION
  Report Type: 
  Country: None (occurrence: None)
  Receive Date: 20050721
  Receipt Date: 20031103
  Transmission Date: 20060218
  Serious: No
  Sender: FDA-Public Use
  Company Number: US-GLAXOSMITHKLINE-A0439710A

PATIENT
  Sex: Female
  Weight: 154.5 kg

DRUGS (9)
  1. AVANDIA [Suspect]
     Dosage: 2MG AT NIGHT
     Route: 048
  2. PAXIL [Concomitant]
     Dosage: 12.5MG PER DAY
     Route: 048
  3. LOTREL [Concomitant]
  4. GLUCOPHAGE [Concomitant]
     Dosage: 2TAB PER DAY
     Route: 048
  5. NEURONTIN [Concomitant]
  6. HUMULIN [Concomitant]
     Route: 058
  7. HUMALOG [Concomitant]
     Route: 058
  8. ASPIRIN [Concomitant]
     Dosage: 162MG PER DAY
     Route: 048
  9. PROTONIX [Concomitant]
     Dosage: 40MG PER DAY
     Route: 048

REACTIONS (1)
  - ADVERSE EVENT [None]
